FAERS Safety Report 12365395 (Version 2)
Quarter: 2016Q2

REPORT INFORMATION
  Report Type: Report from Study
  Country: EC (occurrence: EC)
  Receive Date: 20160512
  Receipt Date: 20160517
  Transmission Date: 20160815
  Serious: Yes (Death, Hospitalization)
  Sender: FDA-Public Use
  Company Number: PHHY2016EC065689

PATIENT
  Age: 73 Year
  Sex: Male

DRUGS (1)
  1. SANDOSTATIN LAR DEPOT [Suspect]
     Active Substance: OCTREOTIDE ACETATE
     Indication: ACROMEGALY
     Dosage: 20 MG, QMO, ONCE A MONTH
     Route: 030
     Dates: start: 20140723, end: 20150911

REACTIONS (3)
  - Abdominal sepsis [Fatal]
  - Cholelithiasis [Fatal]
  - Gallbladder perforation [Fatal]

NARRATIVE: CASE EVENT DATE: 20160426
